FAERS Safety Report 16595662 (Version 1)
Quarter: 2019Q3

REPORT INFORMATION
  Report Type: Spontaneous
  Country: DE (occurrence: DE)
  Receive Date: 20190719
  Receipt Date: 20190719
  Transmission Date: 20191004
  Serious: Yes (Other)
  Sender: FDA-Public Use
  Company Number: DE-ROCHE-2356466

PATIENT
  Age: 38 Year
  Sex: Female

DRUGS (2)
  1. VEMURAFENIB. [Concomitant]
     Active Substance: VEMURAFENIB
     Indication: ONCOCYTOMA
     Route: 065
  2. COBIMETINIB. [Suspect]
     Active Substance: COBIMETINIB
     Indication: ONCOCYTOMA
     Route: 065

REACTIONS (1)
  - Panniculitis [Recovered/Resolved]
